FAERS Safety Report 18104124 (Version 1)
Quarter: 2020Q3

REPORT INFORMATION
  Report Type: Spontaneous
  Country: US (occurrence: US)
  Receive Date: 20200801
  Receipt Date: 20200801
  Transmission Date: 20201103
  Serious: Yes (Hospitalization)
  Sender: FDA-Public Use
  Company Number: None

PATIENT
  Age: 31 Year
  Sex: Female
  Weight: 69.3 kg

DRUGS (5)
  1. NEW CHAPTER EVERY WOMANS MULTIVITAMIN [Concomitant]
  2. HYDROXYZINE [Concomitant]
     Active Substance: HYDROXYZINE HYDROCHLORIDE
  3. KLONOPIN [Concomitant]
     Active Substance: CLONAZEPAM
  4. MAGNESIUM OXALATE [Concomitant]
  5. ESCITALOPRAM [Suspect]
     Active Substance: ESCITALOPRAM OXALATE
     Indication: ANXIETY
     Dosage: ?          QUANTITY:1 TABLET(S);?
     Route: 048

REACTIONS (13)
  - Hypertension [None]
  - Withdrawal syndrome [None]
  - Anxiety [None]
  - Panic attack [None]
  - Weight decreased [None]
  - Incorrect dose administered [None]
  - Diarrhoea [None]
  - Self-injurious ideation [None]
  - Appetite disorder [None]
  - Intrusive thoughts [None]
  - Fear [None]
  - Decreased activity [None]
  - Therapy interrupted [None]

NARRATIVE: CASE EVENT DATE: 20200624
